FAERS Safety Report 18564272 (Version 1)
Quarter: 2020Q4

REPORT INFORMATION
  Report Type: Spontaneous
  Country: US (occurrence: US)
  Receive Date: 20201130
  Receipt Date: 20201130
  Transmission Date: 20210114
  Serious: No
  Sender: FDA-Public Use
  Company Number: None

PATIENT
  Sex: Male

DRUGS (1)
  1. ENBREL [Suspect]
     Active Substance: ETANERCEPT
     Indication: CHRONIC GRAFT VERSUS HOST DISEASE
     Route: 058
     Dates: start: 20201014

REACTIONS (2)
  - Laboratory test abnormal [None]
  - Condition aggravated [None]
